FAERS Safety Report 4950056-2 (Version None)
Quarter: 2006Q1

REPORT INFORMATION
  Report Type: 
  Country: None (occurrence: None)
  Receive Date: 20060320
  Receipt Date: 20060320
  Transmission Date: 20060701
  Serious: Yes (Hospitalization)
  Sender: FDA-Public Use
  Company Number: None

PATIENT
  Age: 47 Year
  Sex: Female
  Weight: 68.7 kg

DRUGS (1)
  1. ESTRADIOL [Suspect]
     Indication: BREAST CANCER STAGE IV
     Dosage: 10MG  3 X DAILY  PO
     Route: 048
     Dates: start: 20060222, end: 20060315

REACTIONS (10)
  - ANAEMIA [None]
  - BONE PAIN [None]
  - CONSTIPATION [None]
  - DEHYDRATION [None]
  - DYSPNOEA EXERTIONAL [None]
  - FATIGUE [None]
  - FEELING ABNORMAL [None]
  - HYPERCALCAEMIA [None]
  - PAIN [None]
  - VOMITING [None]
